FAERS Safety Report 4536481-2 (Version None)
Quarter: 2004Q4

REPORT INFORMATION
  Report Type: 
  Country: None (occurrence: None)
  Receive Date: 20041220
  Receipt Date: 20041208
  Transmission Date: 20050328
  Serious: Yes (Disabling)
  Sender: FDA-Public Use
  Company Number: 04H-163-0283130-00

PATIENT
  Sex: Male

DRUGS (2)
  1. DEMEROL [Suspect]
     Indication: DRUG EXPOSURE DURING PREGNANCY
  2. OXYTOCIN [Suspect]

REACTIONS (2)
  - DRUG EXPOSURE DURING PREGNANCY [None]
  - UNEVALUABLE EVENT [None]
